FAERS Safety Report 7306813-0 (Version None)
Quarter: 2011Q1

REPORT INFORMATION
  Report Type: 
  Country: None (occurrence: None)
  Receive Date: 20110223
  Receipt Date: 20110119
  Transmission Date: 20110831
  Serious: Yes (Other)
  Sender: FDA-Public Use
  Company Number: IL-AMGEN-ISRSP2010012504

PATIENT
  Age: 52 Year
  Sex: Female

DRUGS (4)
  1. NEOTIGASON                         /00530101/ [Concomitant]
     Dosage: UNK
  2. ENBREL [Suspect]
     Indication: PSORIATIC ARTHROPATHY
     Dosage: 25 MG, 2X/WEEK
  3. ISONIAZID [Concomitant]
     Dosage: UNK
  4. SIMVASTATIN [Concomitant]
     Dosage: UNK

REACTIONS (1)
  - DYSPNOEA [None]
